FAERS Safety Report 9524466 (Version 1)
Quarter: 2013Q1

REPORT INFORMATION
  Report Type: Spontaneous
  Country: US (occurrence: None)
  Receive Date: 20130305
  Receipt Date: 20130305
  Transmission Date: 20140127
  Serious: Yes (Hospitalization, Other)
  Sender: FDA-Public Use
  Company Number: 163-21880-12021046

PATIENT
  Age: 72 Year
  Sex: Female
  Weight: 82.1 kg

DRUGS (10)
  1. REVLIMID [Suspect]
     Indication: PLASMA CELL MYELOMA
     Route: 048
  2. ACYCLOVIR (ACICLOVIR) [Concomitant]
  3. BUMEX (BUMETANIDE) [Concomitant]
  4. DECADRON (DEXAMETHASONE) [Concomitant]
  5. MULTIVITAMIN [Concomitant]
  6. NEXIUM [Concomitant]
  7. POTASSIUM (POTASSIUM) [Concomitant]
  8. PREDNISONE (PREDNISONE) [Concomitant]
  9. SUCRALFATE (SUCRALFATE) [Concomitant]
  10. SYNTHROID (LEVOTHYROXINE SODIUM) [Concomitant]

REACTIONS (2)
  - Urosepsis [None]
  - Pancytopenia [None]
